FAERS Safety Report 9826848 (Version 1)
Quarter: 2013Q4

REPORT INFORMATION
  Report Type: Spontaneous
  Country: US (occurrence: None)
  Receive Date: 20131112
  Receipt Date: 20131112
  Transmission Date: 20140711
  Serious: Yes (Other)
  Sender: FDA-Public Use
  Company Number: US-012807

PATIENT
  Age: 55 Year
  Sex: Female
  Weight: 90.72 kg

DRUGS (1)
  1. PICO-SALAX [Suspect]
     Indication: BOWEL PREPARATION
     Dosage: 1ST PACK AT 5 PM; 3 AM TOOK THE SECOND PACK
     Dates: start: 20130818, end: 20130818

REACTIONS (6)
  - Blood urine present [None]
  - Micturition urgency [None]
  - Pollakiuria [None]
  - Bladder pain [None]
  - Urethral pain [None]
  - Headache [None]
